FAERS Safety Report 8730390 (Version 2)
Quarter: 2012Q4

REPORT INFORMATION
  Report Type: 
  Country: US (occurrence: US)
  Receive Date: 20120817
  Receipt Date: 20120912
  Transmission Date: 20130627
  Serious: Yes (Death)
  Sender: FDA-Public Use
  Company Number: US-ASTRAZENECA-2011SE02935

PATIENT
  Age: 75 Year
  Sex: Female

DRUGS (2)
  1. TOPROL XL [Suspect]
     Route: 048
  2. CYMBALTA [Suspect]
     Route: 065

REACTIONS (3)
  - Death [Fatal]
  - Gait disturbance [Unknown]
  - Abdominal discomfort [Unknown]
